FAERS Safety Report 9110186 (Version 1)
Quarter: 2013Q1

REPORT INFORMATION
  Report Type: Spontaneous
  Country: US (occurrence: US)
  Receive Date: 20130222
  Receipt Date: 20130222
  Transmission Date: 20140127
  Serious: Yes (Hospitalization)
  Sender: FDA-Public Use
  Company Number: US-BAYER-2013-020310

PATIENT
  Age: 31 Year
  Sex: Female
  Weight: 52.15 kg

DRUGS (13)
  1. YAZ [Suspect]
     Indication: POLYCYSTIC OVARIES
     Dosage: 1 TABLET, DAILY
     Route: 048
     Dates: start: 20070123, end: 20070227
  2. ZYRTEC [Concomitant]
     Dosage: 10 MG, UNK
     Route: 048
     Dates: start: 20060916, end: 20070418
  3. ROZEREM [Concomitant]
     Dosage: 8 MG, UNK
     Dates: start: 20060921, end: 20070426
  4. HYOSCYAMINE [Concomitant]
     Dosage: 0.125 MG, UNK
     Route: 060
     Dates: start: 20061207, end: 20070106
  5. TOPAMAX [Concomitant]
     Dosage: 50 MG, UNK
     Route: 048
     Dates: start: 20061207, end: 20070105
  6. ACETAMINOPHEN W/CODEINE [Concomitant]
     Indication: LARYNGITIS
     Dosage: UNK
     Route: 048
     Dates: start: 20070101, end: 20070603
  7. HISTUSSIN HC [Concomitant]
     Dosage: 1-2 TSP Q 4-6 HOURS
     Route: 048
     Dates: start: 20070125
  8. AMOXICILLIN [Concomitant]
     Dosage: 500 MG, UNK
     Route: 048
     Dates: start: 20070129
  9. PREDNISONE [Concomitant]
     Dosage: 20 MG, UNK
     Route: 048
     Dates: start: 20070129
  10. PROVIGIL [Concomitant]
     Dosage: 200 MG, UNK
     Route: 048
     Dates: start: 20070217
  11. HYDROCODONE W/APAP [Concomitant]
     Dosage: 5MG/500MG
     Route: 048
     Dates: start: 20070223
  12. PROCHLORPERAZINE [Concomitant]
     Dosage: 10 MG, UNK
     Route: 048
     Dates: start: 20070219, end: 20070614
  13. ALDACTONE [Concomitant]
     Indication: ABDOMINAL PAIN LOWER

REACTIONS (6)
  - Pulmonary embolism [None]
  - Off label use [None]
  - Pain [None]
  - Dyspnoea [None]
  - Hypoaesthesia [None]
  - Pain in extremity [None]
